FAERS Safety Report 8553200-3 (Version None)
Quarter: 2012Q3

REPORT INFORMATION
  Report Type: 
  Country: None (occurrence: None)
  Receive Date: 20120731
  Receipt Date: 20120724
  Transmission Date: 20120928
  Serious: Yes (Other)
  Sender: FDA-Public Use
  Company Number: US-PFIZER INC-2012179433

PATIENT
  Sex: Female
  Weight: 64.399 kg

DRUGS (5)
  1. TOVIAZ [Suspect]
     Indication: BLADDER DISORDER
  2. TOVIAZ [Suspect]
     Indication: RENAL DISORDER
     Dosage: 4 MG, 1X/DAY
     Route: 048
     Dates: start: 20110101
  3. TOVIAZ [Suspect]
     Indication: URINARY INCONTINENCE
  4. CELEBREX [Concomitant]
     Indication: OSTEOARTHRITIS
     Dosage: 200 MG, 2X/DAY
     Route: 048
  5. CELEBREX [Concomitant]
     Indication: RHEUMATOID ARTHRITIS

REACTIONS (8)
  - DRY SKIN [None]
  - DRY MOUTH [None]
  - EYE HAEMORRHAGE [None]
  - VISUAL ACUITY REDUCED [None]
  - PHARYNGEAL DISORDER [None]
  - AGE-RELATED MACULAR DEGENERATION [None]
  - DRUG HYPERSENSITIVITY [None]
  - RASH [None]
